FAERS Safety Report 12304237 (Version 1)
Quarter: 2016Q2

REPORT INFORMATION
  Report Type: Spontaneous
  Country: US (occurrence: None)
  Receive Date: 20160425
  Receipt Date: 20160425
  Transmission Date: 20160815
  Serious: Yes (Other)
  Sender: FDA-Public Use
  Company Number: None

PATIENT
  Age: 48 Year
  Sex: Female
  Weight: 71.22 kg

DRUGS (3)
  1. ESCITALOPRAM OXALATE, 5MG [Suspect]
     Active Substance: ESCITALOPRAM OXALATE
     Indication: ANXIETY
     Route: 048
     Dates: start: 20160328, end: 20160328
  2. FLUTICASONE [Concomitant]
     Active Substance: FLUTICASONE\FLUTICASONE PROPIONATE
  3. SUMATRIPTAN. [Concomitant]
     Active Substance: SUMATRIPTAN

REACTIONS (8)
  - Feeling hot [None]
  - Fall [None]
  - Headache [None]
  - Dizziness [None]
  - Dysgeusia [None]
  - Flushing [None]
  - Nausea [None]
  - Head injury [None]

NARRATIVE: CASE EVENT DATE: 20160328
